FAERS Safety Report 9557118 (Version 2)
Quarter: 2013Q4

REPORT INFORMATION
  Report Type: Spontaneous
  Country: US (occurrence: US)
  Receive Date: 20130926
  Receipt Date: 20131104
  Transmission Date: 20140711
  Serious: Yes (Other)
  Sender: FDA-Public Use
  Company Number: US-PFIZER INC-2013276011

PATIENT
  Age: 43 Year
  Sex: Female

DRUGS (1)
  1. PREMPRO [Suspect]
     Indication: MENOPAUSAL SYMPTOMS
     Dosage: UNK
     Dates: start: 2013

REACTIONS (2)
  - Vaginal haemorrhage [Unknown]
  - Thrombosis [Unknown]
